FAERS Safety Report 24524952 (Version 1)
Quarter: 2024Q4

REPORT INFORMATION
  Report Type: Report from Study
  Country: US (occurrence: US)
  Receive Date: 20241019
  Receipt Date: 20241019
  Transmission Date: 20250115
  Serious: Yes (Other)
  Sender: ABBVIE
  Company Number: US-ABBVIE-5967637

PATIENT
  Sex: Female

DRUGS (1)
  1. SKYRIZI [Suspect]
     Active Substance: RISANKIZUMAB-RZAA
     Indication: Psoriasis
     Route: 058
     Dates: start: 20240623

REACTIONS (8)
  - Elbow operation [Unknown]
  - Swelling [Not Recovered/Not Resolved]
  - Diabetes mellitus [Unknown]
  - Dizziness [Unknown]
  - Fall [Unknown]
  - Rheumatoid arthritis [Unknown]
  - Unevaluable event [Unknown]
  - Dry mouth [Unknown]

NARRATIVE: CASE EVENT DATE: 20240101
